FAERS Safety Report 5615106-9 (Version None)
Quarter: 2008Q1

REPORT INFORMATION
  Report Type: 
  Country: None (occurrence: None)
  Receive Date: 20080206
  Receipt Date: 20070502
  Transmission Date: 20080703
  Serious: Yes (Life-Threatening, Other)
  Sender: FDA-Public Use
  Company Number: A0649695A

PATIENT
  Age: 34 Year
  Sex: Male

DRUGS (1)
  1. ARIXTRA [Suspect]
     Indication: DEEP VEIN THROMBOSIS
     Dosage: 7.5MG PER DAY
     Route: 058
     Dates: start: 20070303, end: 20070418

REACTIONS (2)
  - DEEP VEIN THROMBOSIS [None]
  - TREATMENT FAILURE [None]
